FAERS Safety Report 5329171-X (Version None)
Quarter: 2007Q2

REPORT INFORMATION
  Report Type: 
  Country: None (occurrence: None)
  Receive Date: 20070518
  Receipt Date: 20070509
  Transmission Date: 20071010
  Serious: Yes (Other)
  Sender: FDA-Public Use
  Company Number: US-PFIZER INC-2007010521

PATIENT
  Sex: Male
  Weight: 76.7 kg

DRUGS (9)
  1. TIKOSYN [Suspect]
     Indication: ATRIAL FIBRILLATION
     Route: 048
     Dates: start: 20050401, end: 20070303
  2. COREG [Concomitant]
  3. LISINOPRIL [Concomitant]
  4. ZOCOR [Concomitant]
  5. COUMADIN [Concomitant]
  6. TORSEMIDE [Concomitant]
  7. COMBIVENT [Concomitant]
  8. SPIRONOLACTONE [Concomitant]
  9. PREVACID [Concomitant]

REACTIONS (4)
  - ATRIAL FLUTTER [None]
  - DYSPHAGIA [None]
  - GASTROOESOPHAGEAL CANCER [None]
  - VOMITING [None]
